FAERS Safety Report 9225215 (Version 1)
Quarter: 2013Q1

REPORT INFORMATION
  Report Type: Spontaneous
  Country: US (occurrence: None)
  Receive Date: 20120912
  Receipt Date: 20120912
  Transmission Date: 20140127
  Serious: No
  Sender: FDA-Public Use
  Company Number: 2012SP032291

PATIENT
  Sex: Female

DRUGS (4)
  1. SAPHRIS [Suspect]
     Indication: DEPRESSION
     Route: 060
  2. VIIBRYD [Concomitant]
  3. TRAZODONE [Concomitant]
  4. TOPIRAMATE [Concomitant]

REACTIONS (5)
  - Hypoglycaemia [None]
  - Generalised oedema [None]
  - Purulent discharge [None]
  - Mania [None]
  - Off label use [None]
